FAERS Safety Report 11054199 (Version 1)
Quarter: 2015Q2

REPORT INFORMATION
  Report Type: Spontaneous
  Country: JP (occurrence: JP)
  Receive Date: 20150422
  Receipt Date: 20150422
  Transmission Date: 20150821
  Serious: Yes (Life-Threatening, Disabling, Other)
  Sender: FDA-Public Use
  Company Number: JP-AMGEN-JPNSP2015038497

PATIENT
  Age: 50 Year
  Sex: Male

DRUGS (1)
  1. VECTIBIX [Suspect]
     Active Substance: PANITUMUMAB
     Indication: RECTAL CANCER
     Dosage: UNK, Q2WEEKS
     Route: 041
     Dates: start: 20141229, end: 20150331

REACTIONS (2)
  - Skin disorder [Unknown]
  - Cerebral haemorrhage [Recovered/Resolved]

NARRATIVE: CASE EVENT DATE: 20150409
